FAERS Safety Report 5112948-3 (Version None)
Quarter: 2006Q3

REPORT INFORMATION
  Report Type: 
  Country: None (occurrence: None)
  Receive Date: 20060921
  Receipt Date: 20060921
  Transmission Date: 20061208
  Serious: Yes (Hospitalization)
  Sender: FDA-Public Use
  Company Number: None

PATIENT
  Age: 84 Year
  Sex: Male
  Weight: 74.5 kg

DRUGS (2)
  1. ATENOLOL [Suspect]
     Indication: CORONARY ARTERY DISEASE
     Dosage: 25 MG QD PO [SEVERAL YEARS]
     Route: 048
  2. ATENOLOL [Suspect]
     Indication: HYPERTENSION
     Dosage: 25 MG QD PO [SEVERAL YEARS]
     Route: 048

REACTIONS (6)
  - BLOOD GLUCOSE INCREASED [None]
  - BRADYCARDIA [None]
  - BRAIN NATRIURETIC PEPTIDE INCREASED [None]
  - CARDIOMEGALY [None]
  - CAROTID ARTERY STENOSIS [None]
  - DIZZINESS [None]
